FAERS Safety Report 24864557 (Version 2)
Quarter: 2025Q1

REPORT INFORMATION
  Report Type: Report from Study
  Country: GB (occurrence: GB)
  Receive Date: 20250120
  Receipt Date: 20250205
  Transmission Date: 20250409
  Serious: Yes (Other)
  Sender: ABBVIE
  Company Number: GB-ABBVIE-6093094

PATIENT
  Age: 65 Year
  Sex: Male

DRUGS (2)
  1. SKYRIZI [Suspect]
     Active Substance: RISANKIZUMAB-RZAA
     Indication: Psoriasis
     Dosage: SKYRIZI 150MG/1ML SOLUTION FOR INJECTION PRE-FILLED PENS (ABBVIE LTD) 1 PRE-FILLED DISPOSABLE INJ...
     Route: 058
     Dates: start: 20241211, end: 20250116
  2. SKYRIZI [Suspect]
     Active Substance: RISANKIZUMAB-RZAA
     Dosage: SKYRIZI 150MG/1ML SOLUTION FOR INJECTION PRE-FILLED PENS (ABBVIE LTD) 1 PRE-FILLED DISPOSABLE INJ...
     Route: 058

REACTIONS (1)
  - Shoulder operation [Unknown]

NARRATIVE: CASE EVENT DATE: 20250115
